FAERS Safety Report 10818334 (Version 1)
Quarter: 2015Q1

REPORT INFORMATION
  Report Type: Spontaneous
  Country: BE (occurrence: BE)
  Receive Date: 20150218
  Receipt Date: 20150218
  Transmission Date: 20150721
  Serious: Yes (Hospitalization, Other)
  Sender: FDA-Public Use
  Company Number: BE-PFIZER INC-2015056262

PATIENT
  Age: 55 Year
  Sex: Female
  Weight: 44 kg

DRUGS (8)
  1. FORTICINE [Suspect]
     Active Substance: HERBALS\MINERALS\VITAMINS
     Indication: FATIGUE
     Route: 048
  2. ALDACTONE [Suspect]
     Active Substance: SPIRONOLACTONE
     Indication: OEDEMA
     Dosage: 25 MG, 1X/DAY
     Route: 048
  3. RANITIDINE [Suspect]
     Active Substance: RANITIDINE\RANITIDINE HYDROCHLORIDE
     Indication: PROPHYLAXIS AGAINST GASTROINTESTINAL ULCER
     Dosage: 150 MG, 1X/DAY
     Route: 048
  4. DEXAMETHASONE. [Suspect]
     Active Substance: DEXAMETHASONE
     Indication: METASTASES TO CENTRAL NERVOUS SYSTEM
     Dosage: 16 MG, 1X/DAY
     Route: 048
     Dates: start: 20140630, end: 20140904
  5. NEUROBION [Concomitant]
     Active Substance: CYANOCOBALAMIN\PYRIDOXINE\THIAMINE
     Indication: ANAEMIA
     Dosage: UNK, MONTHLY
     Route: 030
     Dates: start: 201406
  6. XANTHIUM [Concomitant]
     Indication: CHRONIC OBSTRUCTIVE PULMONARY DISEASE
     Dosage: 300 MG, 1X/DAY
     Route: 048
  7. DEPAKINE CHRONO [Suspect]
     Active Substance: VALPROATE SODIUM
     Indication: EPILEPSY
     Dosage: 500 MG, 2X/DAY
     Route: 048
     Dates: start: 201406, end: 20140709
  8. XGEVA [Concomitant]
     Active Substance: DENOSUMAB
     Indication: METASTASES TO BONE
     Dosage: 120 MG, MONTHLY
     Route: 058

REACTIONS (11)
  - Spinal cord infection [Unknown]
  - Cell death [Recovering/Resolving]
  - Thrombocytopenia [Unknown]
  - Hyponatraemia [Recovered/Resolved]
  - Hyperbilirubinaemia [Recovering/Resolving]
  - Cushing^s syndrome [Unknown]
  - Cytomegalovirus hepatitis [Recovering/Resolving]
  - Dysgeusia [Unknown]
  - Decreased appetite [Unknown]
  - Nausea [Unknown]
  - Dermatitis exfoliative [Unknown]

NARRATIVE: CASE EVENT DATE: 201407
